FAERS Safety Report 9149535 (Version 2)
Quarter: 2013Q1

REPORT INFORMATION
  Report Type: Spontaneous
  Country: JP (occurrence: None)
  Receive Date: 20130131
  Receipt Date: 20130211
  Transmission Date: 20140127
  Serious: Yes (Hospitalization)
  Sender: FDA-Public Use
  Company Number: 2012S1001732

PATIENT
  Age: 61 Year
  Sex: Female
  Weight: 33 kg

DRUGS (2)
  1. LIVALO [Suspect]
     Indication: HYPERLIPIDAEMIA
     Route: 048
     Dates: start: 20110428, end: 20121113
  2. THYRADIN S [Concomitant]

REACTIONS (13)
  - Nausea [None]
  - Incontinence [None]
  - Decreased appetite [None]
  - Diarrhoea [None]
  - Rhabdomyolysis [None]
  - Urinary retention [None]
  - Bladder dilatation [None]
  - Weight decreased [None]
  - Dysuria [None]
  - Anuria [None]
  - Hypokalaemia [None]
  - Liver disorder [None]
  - Vomiting [None]
